FAERS Safety Report 15601385 (Version 2)
Quarter: 2018Q4

REPORT INFORMATION
  Report Type: Spontaneous
  Country: JP (occurrence: JP)
  Receive Date: 20181109
  Receipt Date: 20181119
  Transmission Date: 20190205
  Serious: Yes (Life-Threatening, Hospitalization, Other)
  Sender: FDA-Public Use
  Company Number: JP-ASTELLAS-2018JP013940AA

PATIENT
  Age: 47 Year
  Sex: Female
  Weight: 64 kg

DRUGS (14)
  1. KOLBET [Concomitant]
     Active Substance: IGURATIMOD
     Indication: RHEUMATOID ARTHRITIS
     Route: 048
     Dates: start: 20150331
  2. DEXART [Concomitant]
     Active Substance: DEXAMETHASONE SODIUM PHOSPHATE
     Indication: SQUAMOUS CELL CARCINOMA OF THE CERVIX
     Dosage: 9.9 MG, ONCE DAILY
     Route: 065
     Dates: start: 20161130, end: 20161201
  3. PASETOCIN                          /00249602/ [Concomitant]
     Active Substance: AMOXICILLIN
     Indication: ACTINOMYCOSIS
     Route: 048
     Dates: start: 20161015, end: 20161021
  4. PASETOCIN                          /00249602/ [Concomitant]
     Active Substance: AMOXICILLIN
     Route: 048
     Dates: start: 20161216, end: 20161222
  5. PROGRAF [Suspect]
     Active Substance: TACROLIMUS\TACROLIMUS ANHYDROUS
     Indication: RHEUMATOID ARTHRITIS
     Route: 048
     Dates: start: 20130403, end: 20161129
  6. RIMATIL [Concomitant]
     Active Substance: BUCILLAMINE
     Indication: PRODUCT USED FOR UNKNOWN INDICATION
     Dosage: UNK UNK, UNKNOWN FREQ.
     Route: 065
  7. DEXART [Concomitant]
     Active Substance: DEXAMETHASONE SODIUM PHOSPHATE
     Route: 048
     Dates: end: 20161202
  8. RHEUMATREX [Suspect]
     Active Substance: METHOTREXATE SODIUM
     Indication: RHEUMATOID ARTHRITIS
     Route: 048
     Dates: start: 20080403, end: 20161129
  9. FLUOROURACIL. [Suspect]
     Active Substance: FLUOROURACIL
     Indication: SQUAMOUS CELL CARCINOMA OF THE CERVIX
     Route: 065
     Dates: start: 20161130, end: 20161203
  10. CEFMETAZOLE SODIUM [Concomitant]
     Active Substance: CEFMETAZOLE SODIUM
     Indication: FALLOPIAN TUBE ABSCESS
     Route: 065
     Dates: start: 20161206, end: 20161206
  11. DEXART [Concomitant]
     Active Substance: DEXAMETHASONE SODIUM PHOSPHATE
     Indication: SQUAMOUS CELL CARCINOMA OF THE CERVIX
     Route: 048
     Dates: start: 20161130
  12. AMPICILLIN AND SULBACTAM [Concomitant]
     Active Substance: AMPICILLIN SODIUM\SULBACTAM SODIUM
     Indication: FALLOPIAN TUBE ABSCESS
     Route: 065
     Dates: start: 20161206, end: 20161209
  13. AMPICILLIN AND SULBACTAM [Concomitant]
     Active Substance: AMPICILLIN SODIUM\SULBACTAM SODIUM
     Route: 065
     Dates: start: 20161210, end: 20161216
  14. CISPLATIN. [Suspect]
     Active Substance: CISPLATIN
     Indication: SQUAMOUS CELL CARCINOMA OF THE CERVIX
     Route: 065
     Dates: start: 20161130, end: 20161130

REACTIONS (7)
  - Squamous cell carcinoma of the cervix [Recovering/Resolving]
  - Bacteraemia [Recovered/Resolved]
  - Bacteroides infection [Recovered/Resolved]
  - Periodontitis [Recovered/Resolved]
  - Bacterial infection [Recovered/Resolved]
  - Fallopian tube abscess [Recovered/Resolved]
  - Prescribed underdose [Unknown]

NARRATIVE: CASE EVENT DATE: 20130403
